FAERS Safety Report 24319676 (Version 1)
Quarter: 2024Q3

REPORT INFORMATION
  Report Type: Spontaneous
  Country: US (occurrence: US)
  Receive Date: 20240914
  Receipt Date: 20240914
  Transmission Date: 20241017
  Serious: No
  Sender: ABBVIE
  Company Number: US-ABBVIE-5909673

PATIENT
  Sex: Female

DRUGS (5)
  1. HUMIRA [Suspect]
     Active Substance: ADALIMUMAB
     Indication: Bone hypertrophy
     Dosage: 40 MILLIGRAMS
     Route: 058
  2. HUMIRA [Suspect]
     Active Substance: ADALIMUMAB
     Indication: Acne
  3. HUMIRA [Suspect]
     Active Substance: ADALIMUMAB
     Indication: Rash pustular
  4. HUMIRA [Suspect]
     Active Substance: ADALIMUMAB
     Indication: Osteitis
  5. HUMIRA [Suspect]
     Active Substance: ADALIMUMAB
     Indication: Synovitis

REACTIONS (2)
  - Off label use [Not Recovered/Not Resolved]
  - Injection site discharge [Not Recovered/Not Resolved]
